FAERS Safety Report 16706238 (Version 1)
Quarter: 2019Q3

REPORT INFORMATION
  Report Type: Spontaneous
  Country: CN (occurrence: CN)
  Receive Date: 20190815
  Receipt Date: 20190815
  Transmission Date: 20191004
  Serious: Yes (Hospitalization)
  Sender: FDA-Public Use
  Company Number: CN-PFIZER INC-2019345871

PATIENT
  Age: 12 Year
  Sex: Female
  Weight: 45 kg

DRUGS (9)
  1. SULPERAZON [Suspect]
     Active Substance: CEFOPERAZONE SODIUM\SULBACTAM SODIUM
     Indication: PNEUMONITIS
     Dosage: 0.8 G, 3X/DAY
     Route: 041
     Dates: start: 20190725, end: 20190728
  2. GLUCOSE [Concomitant]
     Active Substance: DEXTROSE
     Indication: PNEUMONITIS
     Dosage: 500 ML, 1X/DAY
     Route: 041
     Dates: start: 20190720, end: 20190724
  3. STERILIZED WATER FOR INJECTIONS [Concomitant]
     Indication: PNEUMONITIS
     Dosage: 5 ML, 1X/DAY
     Route: 041
     Dates: start: 20190720, end: 20190724
  4. SODIUM CHLORIDE. [Concomitant]
     Active Substance: SODIUM CHLORIDE
     Indication: PNEUMONITIS
     Dosage: 100 ML, 3X/DAY
     Route: 041
     Dates: start: 20190720, end: 20190728
  5. ZITHROMAX [Suspect]
     Active Substance: AZITHROMYCIN DIHYDRATE
     Indication: PNEUMONITIS
     Dosage: 0.45 G, 1X/DAY
     Route: 041
     Dates: start: 20190720, end: 20190724
  6. ZITHROMAX [Suspect]
     Active Substance: AZITHROMYCIN DIHYDRATE
     Dosage: 0.45 G, 1X/DAY
     Route: 041
     Dates: start: 20190727, end: 20190728
  7. STERILIZED WATER FOR INJECTIONS [Concomitant]
     Dosage: 5 ML, 1X/DAY
     Route: 041
     Dates: start: 20190727, end: 20190728
  8. AMOXICILLIN SODIUM AND CLAVULANATE POTASSIUM [Concomitant]
     Active Substance: AMOXICILLIN\CLAVULANATE POTASSIUM
     Indication: PNEUMONITIS
     Dosage: 1.35 G, 3X/DAY
     Route: 041
     Dates: start: 20190720, end: 20190724
  9. GLUCOSE [Concomitant]
     Active Substance: DEXTROSE
     Dosage: 500 ML, 1X/DAY
     Route: 041
     Dates: start: 20190727, end: 20190728

REACTIONS (2)
  - Rash maculo-papular [Recovered/Resolved]
  - Pruritus [Recovered/Resolved]

NARRATIVE: CASE EVENT DATE: 20190728
